FAERS Safety Report 6615392-2 (Version None)
Quarter: 2010Q1

REPORT INFORMATION
  Report Type: 
  Country: None (occurrence: None)
  Receive Date: 20100305
  Receipt Date: 20091012
  Transmission Date: 20100710
  Serious: No
  Sender: FDA-Public Use
  Company Number: A0811400A

PATIENT
  Age: 54 Year
  Sex: Female

DRUGS (2)
  1. REQUIP [Suspect]
     Dosage: .5MG PER DAY
     Route: 048
     Dates: start: 20091003
  2. TRAZODONE HCL [Concomitant]

REACTIONS (2)
  - DRUG INEFFECTIVE [None]
  - EXPIRED DRUG ADMINISTERED [None]
